FAERS Safety Report 23885723 (Version 3)
Quarter: 2024Q4

REPORT INFORMATION
  Report Type: Spontaneous
  Country: US (occurrence: US)
  Receive Date: 20240522
  Receipt Date: 20241014
  Transmission Date: 20250114
  Serious: No
  Sender: GILEAD
  Company Number: US-GILEAD-2024-0673644

PATIENT
  Age: 51 Year
  Sex: Male

DRUGS (2)
  1. TRUVADA [Suspect]
     Active Substance: EMTRICITABINE\TENOFOVIR DISOPROXIL FUMARATE
     Indication: Prophylaxis
     Dosage: UNK
     Route: 048
     Dates: start: 20170101, end: 20220630
  2. TRUVADA [Suspect]
     Active Substance: EMTRICITABINE\TENOFOVIR DISOPROXIL FUMARATE
     Dosage: UNK
     Route: 048
     Dates: start: 20170523, end: 20220228

REACTIONS (3)
  - Bone density decreased [Unknown]
  - Tooth loss [Recovered/Resolved]
  - Bone loss [Recovered/Resolved]

NARRATIVE: CASE EVENT DATE: 20210101
